FAERS Safety Report 7043953-8 (Version None)
Quarter: 2010Q4

REPORT INFORMATION
  Report Type: 
  Country: None (occurrence: None)
  Receive Date: 20101013
  Receipt Date: 20101008
  Transmission Date: 20110411
  Serious: Yes (Hospitalization)
  Sender: FDA-Public Use
  Company Number: US-AMGEN-QUU444245

PATIENT
  Age: 95 Year
  Sex: Female

DRUGS (18)
  1. SENSIPAR [Suspect]
     Indication: HYPERPARATHYROIDISM SECONDARY
  2. SEROQUEL [Concomitant]
  3. RISPERDAL [Concomitant]
  4. VANTIN [Concomitant]
  5. ATENOLOL [Concomitant]
  6. CALCITONIN-SALMON [Concomitant]
  7. VITAMIN D [Concomitant]
  8. COLACE [Concomitant]
  9. LEXAPRO [Concomitant]
  10. LASIX [Concomitant]
  11. HEPARIN [Concomitant]
     Route: 058
  12. LACTOBACILLUS ACIDOPHILUS [Concomitant]
  13. KEPPRA [Concomitant]
  14. MAGNESIUM [Concomitant]
  15. MEGESTROL ACETATE [Concomitant]
  16. POTASSIUM [Concomitant]
  17. PREDNISONE [Concomitant]
  18. SIMVASTATIN [Concomitant]

REACTIONS (2)
  - DYSPHAGIA [None]
  - LETHARGY [None]
